FAERS Safety Report 12237505 (Version 1)
Quarter: 2016Q2

REPORT INFORMATION
  Report Type: Spontaneous
  Country: FR (occurrence: FR)
  Receive Date: 20160405
  Receipt Date: 20160405
  Transmission Date: 20160815
  Serious: Yes (Death, Life-Threatening)
  Sender: FDA-Public Use
  Company Number: FR-ROCHE-1736556

PATIENT
  Age: 66 Year
  Sex: Male

DRUGS (12)
  1. ESIDREX [Concomitant]
     Active Substance: HYDROCHLOROTHIAZIDE
  2. KARDEGIC [Concomitant]
     Active Substance: ASPIRIN LYSINE
  3. RAMIPRIL. [Concomitant]
     Active Substance: RAMIPRIL
  4. LEVEMIR [Concomitant]
     Active Substance: INSULIN DETEMIR
  5. ACTILYSE [Suspect]
     Active Substance: ALTEPLASE
     Indication: ISCHAEMIC STROKE
     Dosage: 1 ANZ,1 IN 1 ONCE
     Route: 042
     Dates: start: 20160311, end: 20160311
  6. HUMALOG [Concomitant]
     Active Substance: INSULIN LISPRO
  7. METFORMIN [Concomitant]
     Active Substance: METFORMIN HYDROCHLORIDE
     Route: 065
  8. ACEBUTOLOL [Concomitant]
     Active Substance: ACEBUTOLOL
  9. PLAVIX [Concomitant]
     Active Substance: CLOPIDOGREL BISULFATE
  10. HYPERIUM [Concomitant]
     Active Substance: RILMENIDINE PHOSPHATE
  11. FENOFIBRATE. [Concomitant]
     Active Substance: FENOFIBRATE
  12. BYETTA [Concomitant]
     Active Substance: EXENATIDE

REACTIONS (1)
  - Haemorrhagic transformation stroke [Fatal]

NARRATIVE: CASE EVENT DATE: 20160311
